FAERS Safety Report 5214043-1 (Version None)
Quarter: 2007Q1

REPORT INFORMATION
  Report Type: 
  Country: None (occurrence: None)
  Receive Date: 20070122
  Receipt Date: 20070109
  Transmission Date: 20070707
  Serious: Yes (Hospitalization, Other)
  Sender: FDA-Public Use
  Company Number: US-ELI_LILLY_AND_COMPANY-US200609003625

PATIENT
  Age: 58 Year
  Sex: Female
  Weight: 81.632 kg

DRUGS (2)
  1. ZYPREXA [Suspect]
     Indication: MENTAL DISORDER
     Dosage: 5 MG, UNK
     Dates: start: 20000101
  2. ZYPREXA [Suspect]
     Dosage: 10 MG, UNK
     Dates: end: 20050101

REACTIONS (4)
  - CARDIAC DISORDER [None]
  - DIABETES MELLITUS [None]
  - DIABETIC COMA [None]
  - WEIGHT INCREASED [None]
